FAERS Safety Report 7606113-5 (Version None)
Quarter: 2011Q3

REPORT INFORMATION
  Report Type: 
  Country: None (occurrence: None)
  Receive Date: 20110713
  Receipt Date: 20110629
  Transmission Date: 20111222
  Serious: Yes (Other)
  Sender: FDA-Public Use
  Company Number: US-PFIZER INC-2011155909

PATIENT
  Age: 40 Year
  Sex: Female

DRUGS (1)
  1. ELETRIPTAN HYDROBROMIDE [Suspect]
     Indication: MIGRAINE
     Dosage: 40 MG, UNK
     Route: 048

REACTIONS (3)
  - PAIN [None]
  - POST HERPETIC NEURALGIA [None]
  - PARAESTHESIA [None]
